FAERS Safety Report 16935713 (Version 2)
Quarter: 2019Q4

REPORT INFORMATION
  Report Type: Spontaneous
  Country: US (occurrence: US)
  Receive Date: 20191018
  Receipt Date: 20191205
  Transmission Date: 20200122
  Serious: Yes (Hospitalization)
  Sender: FDA-Public Use
  Company Number: US-VERTEX PHARMACEUTICALS-2019-010076

PATIENT
  Age: 16 Year
  Sex: Male

DRUGS (4)
  1. XOLAIR [Concomitant]
     Active Substance: OMALIZUMAB
     Dosage: 375 MG
     Route: 058
  2. SYMDEKO [Suspect]
     Active Substance: IVACAFTOR\TEZACAFTOR
     Indication: CYSTIC FIBROSIS
     Dosage: 100MG TEZACAFTOR/150MG IVACAFTOR; 150MG IVACAFTOR TABLETS, BID
     Route: 048
  3. SYMDEKO [Suspect]
     Active Substance: IVACAFTOR\TEZACAFTOR
     Dosage: 1 YELLOW TABLET IN THE MORNING TWICE A WEEK, 3 TO 4 DAYS APART
     Route: 048
  4. CAYSTON [Concomitant]
     Active Substance: AZTREONAM
     Dosage: 75 MG, TID
     Route: 055

REACTIONS (2)
  - Pneumonia [Unknown]
  - Bronchopulmonary aspergillosis allergic [Unknown]

NARRATIVE: CASE EVENT DATE: 201907
